FAERS Safety Report 25439620 (Version 1)
Quarter: 2025Q2

REPORT INFORMATION
  Report Type: Spontaneous
  Country: US (occurrence: None)
  Receive Date: 20250613
  Receipt Date: 20250613
  Transmission Date: 20250717
  Serious: Yes (Hospitalization, Disabling)
  Sender: FDA-CTU
  Company Number: None

PATIENT
  Age: 22 Year
  Sex: Male
  Weight: 50.4 kg

DRUGS (7)
  1. CITALOPRAM [Suspect]
     Active Substance: CITALOPRAM
     Indication: Anxiety
     Dosage: 5 ML DAILY ORAL
     Route: 048
  2. CITALOPRAM [Suspect]
     Active Substance: CITALOPRAM
     Indication: Sleep disorder
  3. CITALOPRAM [Suspect]
     Active Substance: CITALOPRAM
  4. citalopram liquid generic [Concomitant]
  5. Loratadine generic, [Concomitant]
  6. mens one a day multivitamin, [Concomitant]
  7. 1000mg fish oil supplement [Concomitant]

REACTIONS (17)
  - Withdrawal syndrome [None]
  - Urinary retention [None]
  - Urinary incontinence [None]
  - Feeling abnormal [None]
  - Movement disorder [None]
  - Anxiety [None]
  - Heart rate decreased [None]
  - Balance disorder [None]
  - Hypophagia [None]
  - Insomnia [None]
  - Abdominal distension [None]
  - Dyspepsia [None]
  - Weight decreased [None]
  - Dizziness exertional [None]
  - Hypotension [None]
  - Nausea [None]
  - Palpitations [None]

NARRATIVE: CASE EVENT DATE: 20230217
